FAERS Safety Report 5683428-1 (Version None)
Quarter: 2008Q1

REPORT INFORMATION
  Report Type: 
  Country: None (occurrence: None)
  Receive Date: 20080326
  Receipt Date: 20080311
  Transmission Date: 20080703
  Serious: Yes (Other)
  Sender: FDA-Public Use
  Company Number: 2008S1001020

PATIENT
  Age: 69 Year
  Sex: Male

DRUGS (3)
  1. FINASTERIDE [Suspect]
     Indication: BENIGN PROSTATIC HYPERPLASIA
     Dosage: 5 MG;DAILY;
     Dates: start: 20071124, end: 20071201
  2. BECLOMETHASONE DIPROPIONATE [Concomitant]
  3. SALBUTAMOL [Concomitant]

REACTIONS (3)
  - TESTICULAR MASS [None]
  - TESTICULAR PAIN [None]
  - TESTICULAR SWELLING [None]
